FAERS Safety Report 6034776-7 (Version None)
Quarter: 2009Q1

REPORT INFORMATION
  Report Type: 
  Country: None (occurrence: None)
  Receive Date: 20090112
  Receipt Date: 20090105
  Transmission Date: 20090719
  Serious: Yes (Hospitalization)
  Sender: FDA-Public Use
  Company Number: CA-ELI_LILLY_AND_COMPANY-CA200812002798

PATIENT
  Age: 59 Year
  Sex: Male

DRUGS (6)
  1. ZYPREXA ZYDIS [Suspect]
     Indication: SOMATIC DELUSION
     Dosage: 5 MG, DAILY (1/D)
     Route: 048
     Dates: start: 20061024, end: 20080312
  2. GABAPENTIN [Concomitant]
     Indication: NEUROPATHY PERIPHERAL
  3. MEBENDAZOLE [Concomitant]
     Indication: INFECTION PARASITIC
  4. CINACALCET [Concomitant]
     Indication: BLOOD THYROID STIMULATING HORMONE INCREASED
  5. SEVELAMER [Concomitant]
     Indication: HYPERPHOSPHATAEMIA
  6. REACTINE [Concomitant]

REACTIONS (1)
  - VENTRICULAR TACHYCARDIA [None]
